FAERS Safety Report 9734029 (Version 4)
Quarter: 2013Q4

REPORT INFORMATION
  Report Type: Report from Study
  Country: JP (occurrence: JP)
  Receive Date: 20131205
  Receipt Date: 20131220
  Transmission Date: 20140711
  Serious: Yes (Other)
  Sender: FDA-Public Use
  Company Number: JP-009507513-1305JPN007642

PATIENT
  Age: 33 Year
  Sex: Female
  Weight: 57 kg

DRUGS (6)
  1. GANIRELIX ACETATE [Suspect]
     Indication: PREVENTION OF PREMATURE OVULATION
     Dosage: 0.25 MG, QD
     Route: 058
     Dates: start: 20111117, end: 20111119
  2. PREGNYL 5000IU [Suspect]
     Indication: OVULATION INDUCTION
     Dosage: 10 (THOUSAN-MILLION UNIT), QD
     Route: 051
     Dates: start: 20111120, end: 20111120
  3. THYRADIN [Concomitant]
     Indication: HYPOTHYROIDISM
     Dosage: 1 DF, DAILY, DIVIDED DOSE FREQUENCY U
     Route: 048
     Dates: start: 20111019
  4. GONAL-F [Concomitant]
     Indication: IN VITRO FERTILISATION
     Dosage: 150 UNDER 1000 UNIT, QD
     Route: 030
     Dates: start: 20111113, end: 20111120
  5. MENOTROPINS [Concomitant]
     Indication: IN VITRO FERTILISATION
     Dosage: 75 UNDER 1000 UNIT, QD
     Route: 058
     Dates: start: 20111113, end: 20111116
  6. GONADOTROPIN, CHORIONIC [Concomitant]
     Indication: IN VITRO FERTILISATION
     Dosage: 50 UNDER 1000 UNIT, QD
     Route: 058
     Dates: start: 20111117, end: 20111120

REACTIONS (2)
  - Abortion [Recovered/Resolved]
  - Maternal exposure before pregnancy [Recovered/Resolved]
